FAERS Safety Report 8059506-9 (Version None)
Quarter: 2012Q1

REPORT INFORMATION
  Report Type: 
  Country: None (occurrence: None)
  Receive Date: 20120120
  Receipt Date: 20120105
  Transmission Date: 20120608
  Serious: Yes (Hospitalization, Other)
  Sender: FDA-Public Use
  Company Number: GB-ROCHE-625665

PATIENT
  Sex: Female
  Weight: 53 kg

DRUGS (11)
  1. COPEGUS [Suspect]
     Indication: HEPATITIS C
     Route: 048
     Dates: start: 20090119, end: 20090318
  2. PEGINTERFERON ALFA-2A [Suspect]
     Indication: HEPATITIS C
     Dosage: FORM AND DOSE: PER PROTOCOL
     Route: 058
     Dates: start: 20090119, end: 20091221
  3. COPEGUS [Suspect]
     Dates: start: 20090613, end: 20090701
  4. COPEGUS [Suspect]
     Dates: start: 20090512, end: 20090514
  5. COPEGUS [Suspect]
     Route: 048
  6. COPEGUS [Suspect]
     Dates: start: 20090702, end: 20091221
  7. COPEGUS [Suspect]
     Route: 048
  8. COPEGUS [Suspect]
     Dates: start: 20090319, end: 20090402
  9. COPEGUS [Suspect]
     Dates: start: 20090515, end: 20090605
  10. COPEGUS [Suspect]
     Dates: start: 20090423, end: 20090511
  11. COPEGUS [Suspect]
     Dates: start: 20090606, end: 20090612

REACTIONS (3)
  - PANCYTOPENIA [None]
  - INJECTION SITE THROMBOSIS [None]
  - ANAEMIA [None]
